FAERS Safety Report 14669987 (Version 1)
Quarter: 2018Q1

REPORT INFORMATION
  Report Type: Spontaneous
  Country: US (occurrence: US)
  Receive Date: 20180322
  Receipt Date: 20180322
  Transmission Date: 20180509
  Serious: No
  Sender: FDA-Public Use
  Company Number: US-GLAXOSMITHKLINE-US2018048532

PATIENT
  Sex: Female

DRUGS (14)
  1. AMLODIPINE [Concomitant]
     Active Substance: AMLODIPINE BESYLATE
  2. CLONIDINE. [Concomitant]
     Active Substance: CLONIDINE
  3. IBGARD [Concomitant]
  4. VENTOLIN HFA [Suspect]
     Active Substance: ALBUTEROL SULFATE
     Indication: BRONCHITIS
     Dosage: UNK
     Route: 055
     Dates: start: 20180321
  5. XANAX [Concomitant]
     Active Substance: ALPRAZOLAM
  6. TEAR DROPS [Concomitant]
  7. HYDROCORTISONE. [Concomitant]
     Active Substance: HYDROCORTISONE
  8. PRILOSEC [Concomitant]
     Active Substance: OMEPRAZOLE MAGNESIUM
  9. LOSARTAN. [Concomitant]
     Active Substance: LOSARTAN
  10. ASPIRIN. [Concomitant]
     Active Substance: ASPIRIN
  11. NEURONTIN [Concomitant]
     Active Substance: GABAPENTIN
  12. PAXIL [Concomitant]
     Active Substance: PAROXETINE HYDROCHLORIDE
  13. FLONASE [Concomitant]
     Active Substance: FLUTICASONE PROPIONATE
  14. XALATAN [Concomitant]
     Active Substance: LATANOPROST

REACTIONS (3)
  - Wrong technique in device usage process [Unknown]
  - Extra dose administered [Unknown]
  - Wheezing [Unknown]
